FAERS Safety Report 7474665-4 (Version None)
Quarter: 2011Q2

REPORT INFORMATION
  Report Type: 
  Country: None (occurrence: None)
  Receive Date: 20110509
  Receipt Date: 20110509
  Transmission Date: 20111010
  Serious: Yes (Death)
  Sender: FDA-Public Use
  Company Number: None

PATIENT
  Age: 72 Year
  Sex: Female

DRUGS (5)
  1. REVLIMID [Suspect]
     Indication: MULTIPLE MYELOMA
     Dosage: REVLIMID 25 MG DAILY X21D/28D ORALLY
     Route: 048
     Dates: start: 20100801
  2. METOPROLOL SUCCINATE [Concomitant]
  3. POTASSIUM CHLORIDE [Concomitant]
  4. SIMVASTATIN [Concomitant]
  5. FUROSEMIDE [Concomitant]

REACTIONS (5)
  - FATIGUE [None]
  - DYSPNOEA [None]
  - PNEUMOPERITONEUM [None]
  - COLITIS ISCHAEMIC [None]
  - POLYP [None]
